FAERS Safety Report 24972509 (Version 1)
Quarter: 2025Q1

REPORT INFORMATION
  Report Type: Report from Study
  Country: US (occurrence: None)
  Receive Date: 20250215
  Receipt Date: 20250215
  Transmission Date: 20250409
  Serious: No
  Sender: ALEXION PHARMACEUTICALS
  Company Number: US-AstraZeneca-2012SE88219

PATIENT
  Age: 55 Year

DRUGS (1)
  1. NEXIUM [Suspect]
     Active Substance: ESOMEPRAZOLE MAGNESIUM

REACTIONS (5)
  - Asthma [Unknown]
  - Rhinitis [Unknown]
  - Hypoacusis [Unknown]
  - Malaise [Unknown]
  - Product dose omission issue [Unknown]
